FAERS Safety Report 10067240 (Version 1)
Quarter: 2014Q2

REPORT INFORMATION
  Report Type: Spontaneous
  Country: US (occurrence: None)
  Receive Date: 20140407
  Receipt Date: 20140407
  Transmission Date: 20141212
  Serious: Yes (Death, Life-Threatening, Hospitalization, Other)
  Sender: FDA-Public Use
  Company Number: FK201401122

PATIENT
  Age: 39 Year
  Sex: Male

DRUGS (14)
  1. AZITHROMYCIN [Suspect]
     Indication: PRODUCT USED FOR UNKNOWN INDICATION
     Dosage: UNKNOWN, DOSE HELD ON ADMISSION, UNKNOWN?
  2. TENOFOVIR (TENOFOVIR) UNKNOWN [Suspect]
     Indication: PRODUCT USED FOR UNKNOWN INDICATION
     Dosage: UNKNOWN, DOSE HELD ON ADMISSION, UNKNOWN?
  3. EMTRICITABINE [Suspect]
     Indication: PRODUCT USED FOR UNKNOWN INDICATION
     Dosage: UNKNOWN, DOSE HELD ON ADMISSION, UNKNOWN
  4. KALETRA [Suspect]
     Indication: PRODUCT USED FOR UNKNOWN INDICATION
     Dosage: UNKNOWN, DOSE HELD ON ADMISSION, UNKNOWN?
  5. DAPSONE [Suspect]
     Indication: PRODUCT USED FOR UNKNOWN INDICATION
     Dosage: UNKNOWN, DOSE HELD ON ADMISSION, UNKNOWN
  6. ETHAMBUTOL (ETHAMBUTOL) [Suspect]
     Indication: PRODUCT USED FOR UNKNOWN INDICATION
     Dosage: UNKNOWN, DOSE HELD ON ADMISSION, UNKNOWN
  7. DIVALPROEX [Suspect]
     Indication: PRODUCT USED FOR UNKNOWN INDICATION
     Dosage: UNKNOWN, DOSE HELD ON ADMISSION, UNKNOWN
  8. ETRAVIRINE (ETRAVIRINE) [Concomitant]
  9. RALTEGRAVIR (RALTEGRAVIR) [Concomitant]
  10. RITONAVIR (RITONAVIR) [Concomitant]
  11. DARUNAVIR (DARUNAVIR) [Concomitant]
  12. ETHAMBUTOL (ETHAMBUTOL) [Concomitant]
  13. AZITHROMYCIN (AZITHROMYCIN) [Concomitant]
  14. ATOVAQUONE (ATOVAQUONE) [Concomitant]

REACTIONS (11)
  - Multi-organ failure [None]
  - Vanishing bile duct syndrome [None]
  - Pancytopenia [None]
  - Pneumonia [None]
  - Metabolic acidosis [None]
  - Azotaemia [None]
  - Renal failure acute [None]
  - Hyperbilirubinaemia [None]
  - Hepatomegaly [None]
  - Haemodialysis [None]
  - Cholestasis [None]
